FAERS Safety Report 24120168 (Version 1)
Quarter: 2024Q3

REPORT INFORMATION
  Report Type: Spontaneous
  Country: IN (occurrence: IN)
  Receive Date: 20240722
  Receipt Date: 20240722
  Transmission Date: 20241016
  Serious: Yes (Death)
  Sender: PFIZER
  Company Number: IN-PFIZER INC-PV202400095094

PATIENT
  Age: 37 Year
  Sex: Male

DRUGS (1)
  1. DACOMITINIB [Suspect]
     Active Substance: DACOMITINIB
     Dosage: 30 MG
     Route: 048
     Dates: start: 20240403

REACTIONS (1)
  - Death [Fatal]
